FAERS Safety Report 8798934 (Version 1)
Quarter: 2012Q4

REPORT INFORMATION
  Report Type: Spontaneous
  Country: US (occurrence: None)
  Receive Date: 20120918
  Receipt Date: 20120918
  Transmission Date: 20130627
  Serious: Yes (Life-Threatening, Hospitalization, Disabling)
  Sender: FDA-Public Use
  Company Number: None

PATIENT
  Age: 52 Year
  Sex: Male
  Weight: 97.52 kg

DRUGS (1)
  1. INDOCIN [Suspect]
     Indication: GOUT
     Route: 048
     Dates: start: 20060613, end: 20060615

REACTIONS (3)
  - Renal failure [None]
  - Dialysis [None]
  - Diabetes mellitus inadequate control [None]
